FAERS Safety Report 11624774 (Version 1)
Quarter: 2015Q4

REPORT INFORMATION
  Report Type: Report from Study
  Country: US (occurrence: US)
  Receive Date: 20151013
  Receipt Date: 20151013
  Transmission Date: 20160304
  Serious: Yes (Other)
  Sender: FDA-Public Use
  Company Number: US-BAYER-2015-411437

PATIENT
  Age: 80 Year
  Sex: Male

DRUGS (6)
  1. LEVOTHYROXINE SODIUM. [Concomitant]
     Active Substance: LEVOTHYROXINE SODIUM
  2. NEXAVAR [Suspect]
     Active Substance: SORAFENIB
     Indication: HEPATIC CANCER
     Dosage: 400 MG, BID
     Route: 048
     Dates: start: 2015, end: 2015
  3. VITAMIN B12 [Concomitant]
     Active Substance: CYANOCOBALAMIN
  4. NEXAVAR [Suspect]
     Active Substance: SORAFENIB
     Indication: HEPATIC CANCER
     Dosage: 200 MG,
     Route: 048
     Dates: start: 20150731, end: 2015
  5. LOSARTAN POTASSIUM. [Concomitant]
     Active Substance: LOSARTAN POTASSIUM
  6. ATORVASTATIN CALCIUM. [Concomitant]
     Active Substance: ATORVASTATIN CALCIUM

REACTIONS (5)
  - Decreased appetite [Not Recovered/Not Resolved]
  - Rash [Recovered/Resolved]
  - Dyspnoea exertional [Unknown]
  - Weight decreased [Not Recovered/Not Resolved]
  - Drug intolerance [Unknown]
